FAERS Safety Report 10521413 (Version 2)
Quarter: 2014Q4

REPORT INFORMATION
  Report Type: Spontaneous
  Country: BR (occurrence: BR)
  Receive Date: 20141016
  Receipt Date: 20141016
  Transmission Date: 20150528
  Serious: Yes (Other)
  Sender: FDA-Public Use
  Company Number: BR-SA-2014SA064955

PATIENT
  Age: 11 Year
  Sex: Female
  Weight: 36.8 kg

DRUGS (3)
  1. CEREZYME [Suspect]
     Active Substance: IMIGLUCERASE
     Indication: GAUCHER^S DISEASE
     Dosage: LOT WAS MANUFACTURED IN JUN-2013
     Route: 041
     Dates: start: 20050317, end: 2012
  2. CEREZYME [Suspect]
     Active Substance: IMIGLUCERASE
     Indication: GAUCHER^S DISEASE
     Dosage: LOT WAS MANUFACTURED IN JUN-2013?FURTHER LOTS USED: C3134C01
     Route: 041
     Dates: start: 201203, end: 20140516
  3. TALIGLUCERASE ALFA [Concomitant]
     Active Substance: TALIGLUCERASE ALFA
     Dates: start: 2012

REACTIONS (4)
  - Dengue fever [Unknown]
  - Abdominal pain [Recovered/Resolved]
  - Hypersensitivity [Recovering/Resolving]
  - Back pain [Recovered/Resolved]

NARRATIVE: CASE EVENT DATE: 2006
